APPROVED DRUG PRODUCT: THIOTHIXENE
Active Ingredient: THIOTHIXENE
Strength: 2MG
Dosage Form/Route: CAPSULE;ORAL
Application: A215456 | Product #002 | TE Code: AB
Applicant: AMNEAL EU LTD
Approved: Feb 28, 2022 | RLD: No | RS: No | Type: RX